FAERS Safety Report 20083249 (Version 2)
Quarter: 2023Q1

REPORT INFORMATION
  Report Type: Spontaneous
  Country: DE (occurrence: DE)
  Receive Date: 20211117
  Receipt Date: 20230207
  Transmission Date: 20230418
  Serious: Yes (Hospitalization)
  Sender: FDA-Public Use
  Company Number: DE-ADRED-07164-01

PATIENT
  Age: 75 Year
  Sex: Male
  Weight: 90 kg

DRUGS (19)
  1. HYDROCORTISONE [Suspect]
     Active Substance: HYDROCORTISONE
     Indication: Product used for unknown indication
     Dosage: 10 MILLIGRAM, (2-0-1-0)
     Route: 065
  2. INSULIN GLARGINE [Concomitant]
     Active Substance: INSULIN GLARGINE
     Dosage: UNK (SCHEMA)
     Route: 065
  3. TESTOSTERONE [Concomitant]
     Active Substance: TESTOSTERONE
     Dosage: 250 MILLIGRAM, (SCHEMA)
     Route: 065
  4. TESTOSTERONE [Concomitant]
     Active Substance: TESTOSTERONE
     Dosage: 250 MG, Q2W EVERY 2 WEEKS
     Route: 065
  5. BISOPROLOL [Concomitant]
     Active Substance: BISOPROLOL
     Dosage: 2.5 MILLIGRAM, QD (1-0-0-0)
     Route: 065
  6. PANTOPRAZOLE SODIUM [Concomitant]
     Active Substance: PANTOPRAZOLE SODIUM
     Dosage: 40 MILLIGRAM, QD (1-0-0-0)
     Route: 065
  7. CALCIUM ACETATE [Concomitant]
     Active Substance: CALCIUM ACETATE
     Dosage: 950 MILLIGRAM, QD (0-1-0-0)
     Route: 065
  8. ROSUVASTATIN [Concomitant]
     Active Substance: ROSUVASTATIN
     Dosage: 20 MILLIGRAM, QD (0-0-1-0)
     Route: 065
  9. LEVOTHYROXINE [Concomitant]
     Active Substance: LEVOTHYROXINE
     Dosage: 200 MICROGRAM, QD -0-0-0
     Route: 065
  10. RAMIPRIL [Concomitant]
     Active Substance: RAMIPRIL
     Dosage: 5 MILLIGRAM, QD (1-0-0-0)
     Route: 065
  11. TORSEMIDE [Concomitant]
     Active Substance: TORSEMIDE
     Dosage: 200 MILLIGRAM, (SCHEMA)
     Route: 065
  12. CLOPIDOGREL [Concomitant]
     Active Substance: CLOPIDOGREL BISULFATE
     Dosage: 75 MILLIGRAM, QD (1-0-0-0)
     Route: 065
  13. INSULIN LISPRO [Concomitant]
     Active Substance: INSULIN LISPRO
     Dosage: UNK SCHEMA
     Route: 065
  14. CHOLECALCIFEROL [Concomitant]
     Active Substance: CHOLECALCIFEROL
     Dosage: 2000 IU INTERNATIONAL UNIT(S)
     Route: 065
  15. CHOLECALCIFEROL [Concomitant]
     Active Substance: CHOLECALCIFEROL
     Dosage: 2000 IU INTERNATIONAL UNIT(S), QW (1X PER WEEK)
     Route: 065
  16. LATANOPROST [Concomitant]
     Active Substance: LATANOPROST
     Dosage: UNK, QD 0-0-1-0
     Route: 065
  17. ASPIRIN [Concomitant]
     Active Substance: ASPIRIN
     Dosage: 100 MILLIGRAM, QD  (1-0-0-0)
     Route: 065
  18. EPOETIN ALFA [Concomitant]
     Active Substance: ERYTHROPOIETIN
     Dosage: 4000 IU INTERNATIONAL UNIT(S)
     Route: 065
  19. EPOETIN ALFA [Concomitant]
     Active Substance: ERYTHROPOIETIN
     Dosage: 4000 IU, 3X PER WEEK
     Route: 065

REACTIONS (13)
  - Systemic infection [Unknown]
  - Oedema peripheral [Unknown]
  - Electrocardiogram abnormal [Unknown]
  - Hypertension [Unknown]
  - Disorientation [Unknown]
  - General physical health deterioration [Unknown]
  - Tachycardia [Unknown]
  - Anaemia [Unknown]
  - Hyperglycaemia [Unknown]
  - Tachypnoea [Unknown]
  - Renal impairment [Unknown]
  - Condition aggravated [Unknown]
  - Pyrexia [Unknown]
